FAERS Safety Report 21039531 (Version 12)
Quarter: 2023Q1

REPORT INFORMATION
  Report Type: Report from Study
  Country: VN (occurrence: VN)
  Receive Date: 20220704
  Receipt Date: 20230303
  Transmission Date: 20230417
  Serious: Yes (Death, Life-Threatening, Hospitalization)
  Sender: FDA-Public Use
  Company Number: VN-NOVARTISPH-NVSC2022VN140387

PATIENT
  Age: 35 Year
  Sex: Female
  Weight: 47.5 kg

DRUGS (16)
  1. SECUKINUMAB [Suspect]
     Active Substance: SECUKINUMAB
     Indication: Lupus nephritis
     Dosage: UNK
     Route: 058
     Dates: start: 20220601, end: 20220622
  2. CELLCEPT [Suspect]
     Active Substance: MYCOPHENOLATE MOFETIL
     Indication: Lupus nephritis
     Dosage: 2 G PER DAY
     Route: 065
     Dates: start: 20220427, end: 20220618
  3. CELLCEPT [Suspect]
     Active Substance: MYCOPHENOLATE MOFETIL
     Dosage: UNK
     Route: 065
     Dates: start: 20220618, end: 20220618
  4. METHYLPREDNISOLONE [Suspect]
     Active Substance: METHYLPREDNISOLONE
     Indication: Lupus nephritis
     Dosage: UNK
     Route: 065
     Dates: start: 20220601, end: 20220614
  5. METHYLPREDNISOLONE [Suspect]
     Active Substance: METHYLPREDNISOLONE
     Dosage: UNK
     Route: 065
     Dates: start: 20220615, end: 20220618
  6. VOLTAREN [Concomitant]
     Active Substance: DICLOFENAC SODIUM
     Indication: Lupus nephritis
     Dosage: UNK
     Route: 065
     Dates: start: 20220412, end: 20220629
  7. IRBESARTAN [Concomitant]
     Active Substance: IRBESARTAN
     Indication: Hypertension
     Dosage: UNK
     Route: 065
     Dates: start: 20220601, end: 20220618
  8. AMLODIPINE BESYLATE [Concomitant]
     Active Substance: AMLODIPINE BESYLATE
     Indication: Hypertension
     Dosage: UNK
     Route: 065
     Dates: start: 20220601, end: 20220614
  9. GONCAL [Concomitant]
     Indication: General physical condition
     Dosage: UNK
     Route: 065
     Dates: start: 20220601, end: 20220607
  10. FERLATUM [Concomitant]
     Indication: General physical condition
     Dosage: UNK
     Route: 065
     Dates: start: 20220601, end: 20220616
  11. BISOPROLOL [Concomitant]
     Active Substance: BISOPROLOL
     Indication: Hypertension
     Dosage: UNK
     Route: 065
     Dates: start: 20220608, end: 20220618
  12. SODIUM CHLORIDE [Concomitant]
     Active Substance: SODIUM CHLORIDE
     Indication: Dry eye
     Dosage: UNK
     Route: 065
     Dates: start: 20220414, end: 20220617
  13. ATORVASTATIN [Concomitant]
     Active Substance: ATORVASTATIN
     Indication: Hypercholesterolaemia
     Dosage: UNK
     Route: 065
     Dates: start: 20220430
  14. SPIRONOLACTONE [Concomitant]
     Active Substance: SPIRONOLACTONE
     Indication: Hypertension
     Dosage: UNK
     Route: 065
     Dates: start: 20220517
  15. HYDROXYCHLOROQUINE [Concomitant]
     Active Substance: HYDROXYCHLOROQUINE
     Indication: Lupus nephritis
     Dosage: UNK
     Route: 065
     Dates: start: 20220428, end: 20220618
  16. TELMISARTAN [Concomitant]
     Active Substance: TELMISARTAN
     Indication: Hypertension
     Dosage: UNK
     Route: 065
     Dates: start: 20220517, end: 20220618

REACTIONS (2)
  - Meningitis [Fatal]
  - Pneumonia [Not Recovered/Not Resolved]

NARRATIVE: CASE EVENT DATE: 20220617
